FAERS Safety Report 4420109-6 (Version None)
Quarter: 2004Q3

REPORT INFORMATION
  Report Type: 
  Country: None (occurrence: None)
  Receive Date: 20040806
  Receipt Date: 20040806
  Transmission Date: 20050211
  Serious: Yes (Other)
  Sender: FDA-Public Use
  Company Number: None

PATIENT
  Sex: Female
  Weight: 49.8957 kg

DRUGS (5)
  1. XANAX [Suspect]
     Indication: ANXIETY
     Dosage: 1 MG Q 2 HOURS ORAL
     Route: 048
     Dates: start: 20040801, end: 20040802
  2. SEROQUEL [Suspect]
     Indication: PSYCHOTIC DISORDER
     Dosage: 200 MG QID ORAL
     Route: 048
     Dates: start: 20040716, end: 20040814
  3. SEROQUEL [Suspect]
     Indication: THINKING ABNORMAL
     Dosage: 200 MG QID ORAL
     Route: 048
     Dates: start: 20040716, end: 20040814
  4. RITALIN [Concomitant]
  5. PROZAC [Concomitant]

REACTIONS (1)
  - SOMNOLENCE [None]
